FAERS Safety Report 21643642 (Version 1)
Quarter: 2022Q4

REPORT INFORMATION
  Report Type: Spontaneous
  Country: DE (occurrence: DE)
  Receive Date: 20221125
  Receipt Date: 20221125
  Transmission Date: 20230113
  Serious: Yes (Other)
  Sender: FDA-Public Use
  Company Number: DE-KYOWAKIRIN-2022BKK014672

PATIENT

DRUGS (6)
  1. POTELIGEO [Suspect]
     Active Substance: MOGAMULIZUMAB-KPKC
     Indication: Cutaneous T-cell lymphoma
     Dosage: UNK
     Route: 065
     Dates: start: 202012
  2. POTELIGEO [Suspect]
     Active Substance: MOGAMULIZUMAB-KPKC
     Dosage: UNK (5TH DOSE)
     Route: 065
  3. POTELIGEO [Suspect]
     Active Substance: MOGAMULIZUMAB-KPKC
     Dosage: UNK (RE-INDUCTION OF MOGAMULIZUMAB AFTER 3 MONTHS)
     Route: 065
  4. POTELIGEO [Suspect]
     Active Substance: MOGAMULIZUMAB-KPKC
     Dosage: UNK (RAPID RESPONSE AFTER 6 DOSES)
     Route: 065
  5. POTELIGEO [Suspect]
     Active Substance: MOGAMULIZUMAB-KPKC
     Dosage: UNK (36 DOSES OF MOGA)
     Route: 065
  6. POTELIGEO [Suspect]
     Active Substance: MOGAMULIZUMAB-KPKC
     Dosage: UNK (29 DOSES OF MOGA)
     Route: 065
     Dates: start: 202205

REACTIONS (20)
  - Hepatitis cholestatic [Not Recovered/Not Resolved]
  - Oesophageal candidiasis [Unknown]
  - Autoimmune hepatitis [Unknown]
  - Autoimmune thyroiditis [Unknown]
  - Infected neoplasm [Unknown]
  - Leukocytosis [Unknown]
  - C-reactive protein increased [Unknown]
  - Iron deficiency anaemia [Unknown]
  - Vitiligo [Unknown]
  - Lymphodepletion [Unknown]
  - Alopecia areata [Unknown]
  - Dysphagia [Unknown]
  - Dyspnoea [Unknown]
  - Upper respiratory tract infection [Unknown]
  - Liver disorder [Unknown]
  - Fatigue [Unknown]
  - Dyspnoea [Unknown]
  - Anaemia [Unknown]
  - Lymphopenia [Unknown]
  - Drug eruption [Unknown]
